FAERS Safety Report 16342766 (Version 1)
Quarter: 2019Q2

REPORT INFORMATION
  Report Type: Spontaneous
  Country: US (occurrence: US)
  Receive Date: 20190416
  Receipt Date: 20190416
  Transmission Date: 20190711
  Serious: No
  Sender: FDA-Public Use
  Company Number: None

PATIENT
  Age: 75 Year
  Sex: Female

DRUGS (1)
  1. RILUZOLE TAB 50MG [Suspect]
     Active Substance: RILUZOLE
     Dates: start: 201804

REACTIONS (1)
  - Off label use [None]

NARRATIVE: CASE EVENT DATE: 20190416
